FAERS Safety Report 16053491 (Version 1)
Quarter: 2019Q1

REPORT INFORMATION
  Report Type: Spontaneous
  Country: US (occurrence: US)
  Receive Date: 20190308
  Receipt Date: 20190308
  Transmission Date: 20190418
  Serious: No
  Sender: FDA-Public Use
  Company Number: US-PFIZER INC-2019089195

PATIENT
  Age: 12 Year
  Sex: Male
  Weight: 34.47 kg

DRUGS (3)
  1. GENOTROPIN [Suspect]
     Active Substance: SOMATROPIN
     Dosage: 1.5 MG, UNK
  2. GENOTROPIN [Suspect]
     Active Substance: SOMATROPIN
     Indication: NOONAN SYNDROME
     Dosage: 1.4 MG, 1X/DAY [AT NIGHT RIGHT BEFORE BEDTIME]
     Route: 058
     Dates: start: 2018
  3. GENOTROPIN [Suspect]
     Active Substance: SOMATROPIN
     Dosage: 1.3 MG, DAILY
     Dates: start: 20180526

REACTIONS (7)
  - Device issue [Unknown]
  - Product dose omission [Unknown]
  - Product use in unapproved indication [Unknown]
  - Headache [Unknown]
  - Injection site bruising [Unknown]
  - Injection site pain [Unknown]
  - Injection site haematoma [Unknown]
